FAERS Safety Report 16347413 (Version 1)
Quarter: 2019Q2

REPORT INFORMATION
  Report Type: Spontaneous
  Country: FR (occurrence: FR)
  Receive Date: 20190523
  Receipt Date: 20190523
  Transmission Date: 20190711
  Serious: Yes (Other)
  Sender: FDA-Public Use
  Company Number: FR-BAYER-2019-095583

PATIENT
  Age: 38 Year
  Sex: Male

DRUGS (5)
  1. STIVARGA [Suspect]
     Active Substance: REGORAFENIB
     Indication: HEPATOCELLULAR CARCINOMA
     Dosage: 80 MG, QD FOR ONE WEEK
     Dates: start: 201809, end: 2018
  2. NEXAVAR [Suspect]
     Active Substance: SORAFENIB
     Indication: HEPATOCELLULAR CARCINOMA
     Dosage: 800 MG, QD
     Dates: start: 20180810, end: 201809
  3. STIVARGA [Suspect]
     Active Substance: REGORAFENIB
     Indication: HEPATOCELLULAR CARCINOMA
     Dosage: 120 MG, QD
     Dates: start: 2018
  4. UREA. [Concomitant]
     Active Substance: UREA
     Dosage: UNK
  5. STIVARGA [Suspect]
     Active Substance: REGORAFENIB
     Indication: HEPATOCELLULAR CARCINOMA
     Dosage: 160 MG, QD
     Dates: start: 2018, end: 2018

REACTIONS (6)
  - Palmar-plantar erythrodysaesthesia syndrome [None]
  - Asthenia [None]
  - Abdominal pain upper [Recovering/Resolving]
  - Off label use [None]
  - Hepatocellular carcinoma [None]
  - Hepatic rupture [None]

NARRATIVE: CASE EVENT DATE: 2018
